FAERS Safety Report 16244640 (Version 1)
Quarter: 2019Q2

REPORT INFORMATION
  Report Type: Report from Study
  Country: US (occurrence: US)
  Receive Date: 20190426
  Receipt Date: 20190426
  Transmission Date: 20190711
  Serious: Yes (Hospitalization, Other)
  Sender: FDA-Public Use
  Company Number: US-GILEAD-2019-0404367

PATIENT
  Age: 70 Year
  Sex: Male

DRUGS (22)
  1. AMBRISENTAN [Suspect]
     Active Substance: AMBRISENTAN
     Indication: PULMONARY ARTERIAL HYPERTENSION
     Dosage: 10 MG, QD
     Route: 048
     Dates: start: 201110
  2. PRAVASTATIN. [Concomitant]
     Active Substance: PRAVASTATIN
  3. OXYGEN. [Concomitant]
     Active Substance: OXYGEN
  4. ORENITRAM [Concomitant]
     Active Substance: TREPROSTINIL
  5. TRAZODONE [Concomitant]
     Active Substance: TRAZODONE HYDROCHLORIDE
  6. PANTOPRAZOLE [Concomitant]
     Active Substance: PANTOPRAZOLE
  7. DIPHENHYDRAMINE. [Concomitant]
     Active Substance: DIPHENHYDRAMINE
  8. SILDENAFIL. [Concomitant]
     Active Substance: SILDENAFIL
  9. DOCUSATE SODIUM. [Concomitant]
     Active Substance: DOCUSATE SODIUM
  10. WARFARIN [Concomitant]
     Active Substance: WARFARIN
  11. PREDNISONE. [Concomitant]
     Active Substance: PREDNISONE
  12. GLIPIZIDE. [Concomitant]
     Active Substance: GLIPIZIDE
  13. FLONASE ALLERGY RELIEF [Concomitant]
     Active Substance: FLUTICASONE PROPIONATE
  14. ASPIRIN (E.C.) [Concomitant]
     Active Substance: ASPIRIN
  15. LASIX [Concomitant]
     Active Substance: FUROSEMIDE
  16. LORATADINE. [Concomitant]
     Active Substance: LORATADINE
  17. PERIDEX [CHLORHEXIDINE GLUCONATE] [Concomitant]
  18. ALLOPURINOL. [Concomitant]
     Active Substance: ALLOPURINOL
  19. BUPROPION. [Concomitant]
     Active Substance: BUPROPION
  20. MELATONIN [Concomitant]
     Active Substance: MELATONIN
  21. TREPROSTINIL DIOLAMIN [Concomitant]
     Active Substance: TREPROSTINIL DIOLAMINE
  22. TRIAMCINOLONE [Concomitant]
     Active Substance: TRIAMCINOLONE

REACTIONS (1)
  - Aortic valve stenosis [Recovered/Resolved]

NARRATIVE: CASE EVENT DATE: 20190408
